FAERS Safety Report 8554153-4 (Version None)
Quarter: 2012Q3

REPORT INFORMATION
  Report Type: 
  Country: None (occurrence: None)
  Receive Date: 20120731
  Receipt Date: 20120731
  Transmission Date: 20120928
  Serious: Yes (Other)
  Sender: FDA-Public Use
  Company Number: PHHY2012AU061899

PATIENT
  Sex: Female

DRUGS (4)
  1. DIABEX S.R. [Concomitant]
     Indication: DIABETES MELLITUS
     Dosage: 1 G, QHS
     Dates: start: 20120201
  2. VALIUM [Concomitant]
     Indication: SEDATIVE THERAPY
     Dosage: 5 MG, QHS
     Route: 048
     Dates: start: 20120701
  3. TEGRETOL [Suspect]
     Indication: BIPOLAR DISORDER
     Dosage: 2 DF, BID
     Route: 048
  4. TEGRETOL [Suspect]
     Dosage: 3 DF, BID

REACTIONS (4)
  - PANIC ATTACK [None]
  - AFFECTIVE DISORDER [None]
  - FEELING ABNORMAL [None]
  - DEPRESSION [None]
